FAERS Safety Report 7164339-1 (Version None)
Quarter: 2010Q4

REPORT INFORMATION
  Report Type: 
  Country: None (occurrence: None)
  Receive Date: 20101123
  Receipt Date: 20100929
  Transmission Date: 20110411
  Serious: No
  Sender: FDA-Public Use
  Company Number: 015364

PATIENT
  Sex: Female
  Weight: 47.1 kg

DRUGS (5)
  1. CIMZIA [Suspect]
     Indication: CROHN'S DISEASE
     Dosage: (200 1X/2 WEEKS SUBCUTANEOUS)
     Route: 058
     Dates: start: 20091001
  2. CORTIFOAM [Concomitant]
  3. IMURAN [Concomitant]
  4. CORTICOSTEROIDS NOS [Concomitant]
  5. ASACOL [Concomitant]

REACTIONS (5)
  - ABDOMINAL PAIN [None]
  - CLOSTRIDIAL INFECTION [None]
  - DIARRHOEA [None]
  - FREQUENT BOWEL MOVEMENTS [None]
  - NAUSEA [None]
